FAERS Safety Report 8773391 (Version 2)
Quarter: 2013Q3

REPORT INFORMATION
  Report Type: Report from Study
  Country: CN (occurrence: CN)
  Receive Date: 20120907
  Receipt Date: 20130731
  Transmission Date: 20140515
  Serious: Yes (Hospitalization)
  Sender: FDA-Public Use
  Company Number: CN-ROCHE-1118758

PATIENT
  Age: 51 Year
  Sex: Female
  Weight: 57.5 kg

DRUGS (4)
  1. PEGASYS [Suspect]
     Indication: HEPATITIS C
     Route: 058
     Dates: start: 20120330, end: 20120810
  2. PEGASYS [Suspect]
     Route: 058
     Dates: start: 20120817
  3. PEGASYS [Suspect]
     Route: 058
     Dates: start: 201207, end: 201307
  4. RIBAVIRIN [Concomitant]
     Indication: HEPATITIS C
     Route: 048
     Dates: start: 20120330

REACTIONS (2)
  - White blood cell count decreased [Unknown]
  - Red blood cell count increased [Unknown]
